FAERS Safety Report 10721164 (Version 1)
Quarter: 2015Q1

REPORT INFORMATION
  Report Type: Report from Study
  Country: CA (occurrence: CA)
  Receive Date: 20150119
  Receipt Date: 20150119
  Transmission Date: 20150721
  Serious: Yes (Hospitalization, Other)
  Sender: FDA-Public Use
  Company Number: CA-BRISTOL-MYERS SQUIBB COMPANY-17115379

PATIENT
  Age: 56 Year
  Sex: Female
  Weight: 120 kg

DRUGS (6)
  1. ABATACEPT [Suspect]
     Active Substance: ABATACEPT
     Indication: RHEUMATOID ARTHRITIS
     Dosage: 1000 MG, Q4WK
     Route: 042
     Dates: start: 20120319
  2. ACETAMINOPHEN. [Concomitant]
     Active Substance: ACETAMINOPHEN
  3. FERROUS GLUCONATE [Concomitant]
     Active Substance: FERROUS GLUCONATE
  4. CELEBREX [Concomitant]
     Active Substance: CELECOXIB
  5. ATIVAN [Concomitant]
     Active Substance: LORAZEPAM
  6. INSULIN [Concomitant]
     Active Substance: INSULIN NOS

REACTIONS (5)
  - Cerebrovascular accident [Unknown]
  - Cerebral haemorrhage [Unknown]
  - Red blood cell count decreased [Unknown]
  - Sinusitis [Unknown]
  - Gastroenteritis [Recovered/Resolved]

NARRATIVE: CASE EVENT DATE: 201211
